FAERS Safety Report 5757752-8 (Version None)
Quarter: 2008Q2

REPORT INFORMATION
  Report Type: 
  Country: None (occurrence: None)
  Receive Date: 20080529
  Receipt Date: 20080519
  Transmission Date: 20081010
  Serious: Yes (Hospitalization)
  Sender: FDA-Public Use
  Company Number: 2008-0764

PATIENT
  Age: 45 Year
  Sex: Male

DRUGS (1)
  1. LANREOTIDE AUTOGEL(LANREOTIDE ACETATE) (LANREOTIDE ACETATE) [Suspect]
     Indication: ACROMEGALY
     Dosage: ONCE
     Route: 030
     Dates: start: 20080516, end: 20080516

REACTIONS (2)
  - HEPATITIS ACUTE [None]
  - PANCREATITIS ACUTE [None]
